FAERS Safety Report 23196333 (Version 3)
Quarter: 2023Q4

REPORT INFORMATION
  Report Type: Report from Study
  Country: RO (occurrence: RO)
  Receive Date: 20231117
  Receipt Date: 20231129
  Transmission Date: 20240110
  Serious: Yes (Other)
  Sender: FDA-Public Use
  Company Number: RO-002147023-NVSC2023RO242299

PATIENT
  Age: 66 Year
  Sex: Female

DRUGS (2)
  1. KISQALI [Suspect]
     Active Substance: RIBOCICLIB
     Indication: Metastases to bone
     Dosage: 200 MG, BID (2/DAY)
     Route: 048
     Dates: start: 20211027
  2. IMOVANE [Concomitant]
     Active Substance: ZOPICLONE
     Indication: Product used for unknown indication
     Dosage: UNK (1/DAY IN THE EVENING)
     Route: 065
     Dates: start: 2006

REACTIONS (5)
  - Infarction [Recovered/Resolved]
  - Cardiac fibrillation [Unknown]
  - Ischaemic stroke [Recovered/Resolved]
  - Malaise [Unknown]
  - Product use in unapproved indication [Not Recovered/Not Resolved]

NARRATIVE: CASE EVENT DATE: 20211027
